FAERS Safety Report 8216065-5 (Version None)
Quarter: 2012Q1

REPORT INFORMATION
  Report Type: 
  Country: None (occurrence: None)
  Receive Date: 20120316
  Receipt Date: 20120308
  Transmission Date: 20120608
  Serious: Yes (Other)
  Sender: FDA-Public Use
  Company Number: US-ALEXION PHARMACEUTICALS INC.-A201200193

PATIENT
  Sex: Male
  Weight: 90.25 kg

DRUGS (10)
  1. FERROUS SULFATE TAB [Concomitant]
  2. LISINOPRIL [Concomitant]
  3. PRAVASTATIN [Concomitant]
  4. FOLIC ACID [Concomitant]
  5. ATENOLOL [Concomitant]
  6. COUMADIN [Concomitant]
  7. PRILOSEC [Concomitant]
  8. SOLIRIS [Suspect]
     Indication: PAROXYSMAL NOCTURNAL HAEMOGLOBINURIA
     Dosage: 600 MG, QW
     Route: 042
     Dates: start: 20070701, end: 20070101
  9. SOLIRIS [Suspect]
     Dosage: 900 MG, Q2W
     Route: 042
     Dates: start: 20070101
  10. ASPIRIN [Concomitant]

REACTIONS (1)
  - MALIGNANT MELANOMA [None]
